FAERS Safety Report 6473318-9 (Version None)
Quarter: 2009Q4

REPORT INFORMATION
  Report Type: 
  Country: None (occurrence: None)
  Receive Date: 20091204
  Receipt Date: 20080710
  Transmission Date: 20100525
  Serious: Yes (Other)
  Sender: FDA-Public Use
  Company Number: US-ELI_LILLY_AND_COMPANY-US200807002277

PATIENT
  Sex: Female
  Weight: 66.667 kg

DRUGS (19)
  1. BYETTA [Suspect]
     Dosage: 5 UG, 2/D
     Route: 058
     Dates: start: 20050101, end: 20050101
  2. BYETTA [Suspect]
     Dosage: 10 UG, 2/D
     Route: 058
     Dates: start: 20050101, end: 20071001
  3. BYETTA [Suspect]
     Dosage: 10 UG, 2/D
     Route: 058
     Dates: start: 20080710
  4. ANTI-DIABETICS [Concomitant]
     Indication: TYPE 2 DIABETES MELLITUS
     Dates: start: 20080101, end: 20080709
  5. CYMBALTA [Concomitant]
     Dosage: 60 MG, DAILY (1/D)
     Route: 048
     Dates: end: 20070101
  6. CYMBALTA [Concomitant]
     Dosage: 30 MG, DAILY (1/D)
     Route: 048
     Dates: start: 20070101
  7. PREDNISONE [Concomitant]
     Dosage: 3 MG, 4/W
  8. PREDNISONE [Concomitant]
     Dosage: 4 MG, 3/W
  9. LORAZEPAM [Concomitant]
     Indication: ANXIETY
     Dosage: 1 MG, 3/D
  10. HYDROCODONE [Concomitant]
     Indication: PAIN
     Dosage: 15 MG, 4/D
  11. TRANDOLAPRIL [Concomitant]
     Indication: BLOOD PRESSURE
     Dosage: 4 MG, DAILY (1/D)
     Route: 048
  12. ACIPHEX [Concomitant]
     Dosage: 20 MG, DAILY (1/D)
     Route: 048
  13. LEVOXYL [Concomitant]
     Dosage: 50 UG, 6/W
     Route: 048
  14. LEVOXYL [Concomitant]
     Dosage: 100 UG, WEEKLY (1/W)
     Route: 048
  15. FUROSEMIDE [Concomitant]
     Dosage: 40 MG, DAILY (1/D)
     Route: 048
  16. VITAMIN D [Concomitant]
     Dosage: 1000 U, UNK
  17. LIPITOR [Concomitant]
     Indication: BLOOD CHOLESTEROL
     Dosage: UNK, EACH EVENING
     Route: 048
  18. AMBIEN [Concomitant]
     Indication: INSOMNIA
     Dosage: 18.75 MG, EACH EVENING
  19. ZETIA [Concomitant]
     Route: 048
     Dates: end: 20070101

REACTIONS (9)
  - BLOOD GLUCOSE INCREASED [None]
  - DECREASED APPETITE [None]
  - DYSGEUSIA [None]
  - HYPOGLYCAEMIC UNCONSCIOUSNESS [None]
  - IMPAIRED GASTRIC EMPTYING [None]
  - OTITIS MEDIA VIRAL [None]
  - ROAD TRAFFIC ACCIDENT [None]
  - VISUAL IMPAIRMENT [None]
  - WEIGHT DECREASED [None]
